FAERS Safety Report 6845082-2 (Version None)
Quarter: 2010Q3

REPORT INFORMATION
  Report Type: 
  Country: None (occurrence: None)
  Receive Date: 20100715
  Receipt Date: 20070813
  Transmission Date: 20110219
  Serious: No
  Sender: FDA-Public Use
  Company Number: US-PFIZER INC-2007067736

PATIENT
  Sex: Female
  Weight: 68.2 kg

DRUGS (1)
  1. CHANTIX [Suspect]
     Indication: SMOKING CESSATION THERAPY
     Dates: start: 20070601

REACTIONS (6)
  - CHILLS [None]
  - DECREASED APPETITE [None]
  - FATIGUE [None]
  - MALAISE [None]
  - NAUSEA [None]
  - PYREXIA [None]
